FAERS Safety Report 8228542-1 (Version None)
Quarter: 2012Q1

REPORT INFORMATION
  Report Type: 
  Country: None (occurrence: None)
  Receive Date: 20120322
  Receipt Date: 20120313
  Transmission Date: 20120608
  Serious: Yes (Other)
  Sender: FDA-Public Use
  Company Number: CO-SANOFI-AVENTIS-2012SA017989

PATIENT
  Age: 10 Year
  Sex: Female

DRUGS (1)
  1. LANTUS [Suspect]
     Route: 058
     Dates: start: 20090101

REACTIONS (5)
  - HYPERGLYCAEMIA [None]
  - DIABETIC KETOACIDOSIS [None]
  - DEVICE FAILURE [None]
  - KETOACIDOSIS [None]
  - VOMITING [None]
